FAERS Safety Report 9422019 (Version 2)
Quarter: 2014Q2

REPORT INFORMATION
  Report Type: Report from Study
  Country: CA (occurrence: CA)
  Receive Date: 20130726
  Receipt Date: 20140423
  Transmission Date: 20141212
  Serious: Yes (Hospitalization)
  Sender: FDA-Public Use
  Company Number: CA-JNJFOC-20130714539

PATIENT
  Age: 55 Year
  Sex: Male
  Weight: 60 kg

DRUGS (3)
  1. REMICADE [Suspect]
     Indication: CROHN^S DISEASE
     Dosage: WEEK 2
     Route: 042
     Dates: start: 20130507
  2. REMICADE [Suspect]
     Indication: CROHN^S DISEASE
     Dosage: WEEK 6
     Route: 042
     Dates: start: 20130604
  3. REMICADE [Suspect]
     Indication: CROHN^S DISEASE
     Dosage: WEEK 0
     Route: 042
     Dates: start: 20130422

REACTIONS (3)
  - Abdominal pain upper [Unknown]
  - Decreased appetite [Unknown]
  - Condition aggravated [Unknown]
